FAERS Safety Report 6428050-4 (Version None)
Quarter: 2009Q4

REPORT INFORMATION
  Report Type: 
  Country: None (occurrence: None)
  Receive Date: 20091105
  Receipt Date: 20091030
  Transmission Date: 20100525
  Serious: No
  Sender: FDA-Public Use
  Company Number: CA-ASTRAZENECA-2009SE16180

PATIENT
  Age: 55 Year
  Sex: Male
  Weight: 75 kg

DRUGS (6)
  1. MERREM [Suspect]
     Indication: INFECTION
     Route: 042
     Dates: start: 20090523, end: 20090526
  2. MERREM [Interacting]
     Route: 042
     Dates: start: 20090812, end: 20090826
  3. MERREM [Interacting]
     Route: 042
     Dates: start: 20090922, end: 20090929
  4. VALPROIC ACID [Interacting]
     Indication: CONVULSION
     Route: 065
     Dates: start: 20080101
  5. TEGRETOL [Concomitant]
     Indication: CONVULSION
     Route: 050
     Dates: start: 20080101
  6. KEPPRA [Concomitant]
     Indication: CONVULSION
     Route: 050
     Dates: start: 20080101

REACTIONS (2)
  - CONVULSION [None]
  - DRUG INTERACTION [None]
